FAERS Safety Report 5746496-4 (Version None)
Quarter: 2008Q2

REPORT INFORMATION
  Report Type: 
  Country: None (occurrence: None)
  Receive Date: 20080522
  Receipt Date: 20080514
  Transmission Date: 20081010
  Serious: Yes (Hospitalization)
  Sender: FDA-Public Use
  Company Number: PHHY2008JP05260

PATIENT
  Age: 62 Year
  Sex: Male
  Weight: 61 kg

DRUGS (1)
  1. VOLTAREN [Suspect]
     Indication: PROCEDURAL PAIN
     Dosage: 50 MG, QD
     Route: 054
     Dates: start: 20020307

REACTIONS (3)
  - ANAL HAEMORRHAGE [None]
  - RECTAL DISCHARGE [None]
  - RECTAL PERFORATION [None]
